FAERS Safety Report 4974705-8 (Version None)
Quarter: 2006Q2

REPORT INFORMATION
  Report Type: 
  Country: None (occurrence: None)
  Receive Date: 20060410
  Receipt Date: 20060324
  Transmission Date: 20061013
  Serious: Yes (Death)
  Sender: FDA-Public Use
  Company Number: DEU-2006-0002092

PATIENT
  Age: 49 Year
  Sex: Female

DRUGS (4)
  1. THEOPHYLLINE [Suspect]
     Indication: DRUG USE FOR UNKNOWN INDICATION
  2. AMITRIPTYLINE (AMITRIPTYLINE) [Suspect]
  3. CARBAMAZEPINE [Suspect]
  4. TETRAZEPAM (TETRAZEPAM) [Suspect]

REACTIONS (3)
  - HEPATIC FAILURE [None]
  - HEPATIC NECROSIS [None]
  - RESPIRATORY FAILURE [None]
